FAERS Safety Report 24183033 (Version 1)
Quarter: 2024Q3

REPORT INFORMATION
  Report Type: Report from Study
  Country: FR (occurrence: FR)
  Receive Date: 20240807
  Receipt Date: 20240807
  Transmission Date: 20241017
  Serious: Yes (Death)
  Sender: MYLAN
  Company Number: FR-MYLANLABS-2022M1141525

PATIENT
  Age: 53 Year
  Sex: Female

DRUGS (2)
  1. SUFENTANIL [Suspect]
     Active Substance: SUFENTANIL
     Indication: Product used for unknown indication
     Dosage: UNK
     Route: 065
  2. TRAMADOL [Suspect]
     Active Substance: TRAMADOL\TRAMADOL HYDROCHLORIDE
     Indication: Product used for unknown indication
     Dosage: UNK
     Route: 065

REACTIONS (4)
  - Overdose [Fatal]
  - Death [Fatal]
  - Toxicity to various agents [Fatal]
  - Drug abuse [Fatal]
